FAERS Safety Report 5131543-3 (Version None)
Quarter: 2006Q4

REPORT INFORMATION
  Report Type: 
  Country: None (occurrence: None)
  Receive Date: 20061020
  Receipt Date: 20061010
  Transmission Date: 20070319
  Serious: Yes (Life-Threatening)
  Sender: FDA-Public Use
  Company Number: FR-ROCHE-466888

PATIENT
  Sex: Female
  Weight: 1.7 kg

DRUGS (3)
  1. RIVOTRIL [Suspect]
     Indication: DRUG USE FOR UNKNOWN INDICATION
  2. LARGACTIL [Suspect]
     Indication: DRUG USE FOR UNKNOWN INDICATION
  3. HALDOL [Concomitant]

REACTIONS (9)
  - APGAR SCORE LOW [None]
  - CAESAREAN SECTION [None]
  - DRUG EXPOSURE DURING PREGNANCY [None]
  - FOETAL GROWTH RETARDATION [None]
  - HYPOTONIA [None]
  - POOR WEIGHT GAIN NEONATAL [None]
  - PREMATURE BABY [None]
  - RESPIRATORY DEPRESSION [None]
  - RESPIRATORY DISTRESS [None]
